FAERS Safety Report 25715210 (Version 1)
Quarter: 2025Q3

REPORT INFORMATION
  Report Type: Spontaneous
  Country: US (occurrence: None)
  Receive Date: 20250821
  Receipt Date: 20250821
  Transmission Date: 20251021
  Serious: Yes (Other)
  Sender: FDA-CTU
  Company Number: None

PATIENT
  Sex: Male

DRUGS (11)
  1. ENBREL [Suspect]
     Active Substance: ETANERCEPT
     Dosage: FREQUENCY : WEEKLY;?
     Route: 058
     Dates: end: 20241213
  2. AMLODIPINE [Concomitant]
     Active Substance: AMLODIPINE BESYLATE
  3. ASPIRIN LOW EC [Concomitant]
  4. ATORVASTATIN [Concomitant]
     Active Substance: ATORVASTATIN
  5. BRILINTA [Concomitant]
     Active Substance: TICAGRELOR
  6. CANDESARTAN [Concomitant]
     Active Substance: CANDESARTAN
  7. CELECOXIB [Concomitant]
     Active Substance: CELECOXIB
  8. COSENTYX [Concomitant]
     Active Substance: SECUKINUMAB
  9. HUMIRA KIT [Concomitant]
  10. LOSARTAN POTASSIUM [Concomitant]
     Active Substance: LOSARTAN POTASSIUM
  11. LOSARTAN POTASSIUM [Concomitant]
     Active Substance: LOSARTAN POTASSIUM

REACTIONS (2)
  - Therapy interrupted [None]
  - Condition aggravated [None]
